FAERS Safety Report 8596608 (Version 2)
Quarter: 2013Q2

REPORT INFORMATION
  Report Type: Spontaneous
  Country: US (occurrence: US)
  Receive Date: 20120605
  Receipt Date: 20130618
  Transmission Date: 20140414
  Serious: Yes (Hospitalization, Disabling)
  Sender: FDA-Public Use
  Company Number: US-ASTRAZENECA-2012SE35678

PATIENT
  Age: 43 Year
  Sex: Female
  Weight: 140.6 kg

DRUGS (18)
  1. MYLANTA [Concomitant]
  2. WARFARIN [Concomitant]
     Dosage: 25 MG TABLET 2 DAYS  60 TAB
  3. METHOCARBAMOL [Concomitant]
     Dosage: 750 MG TABLET 2 DAYS  60 TAB
  4. GABAPENTIN [Concomitant]
     Dosage: 2 DAYS  60 TAB
  5. LISINOPRIL [Concomitant]
  6. SPIRONOLACTONE [Concomitant]
  7. CARVEDILOL [Concomitant]
     Dosage: 125 MG FOR 2 DAYS
  8. HYDRALAZINE [Concomitant]
  9. PRENTOL [Concomitant]
  10. FUROSEMIDE [Concomitant]
  11. NEXIUM [Suspect]
     Dosage: ONE TIME A DAY
     Route: 048
     Dates: start: 2001, end: 2013
  12. OMEPRAZOLE [Suspect]
     Route: 048
  13. SODIUM BICARBONATE [Concomitant]
     Dosage: 40-1, 1 MG
  14. TUMS [Concomitant]
  15. ALKASELTZER [Concomitant]
  16. MILK OF MAGNESIA [Concomitant]
  17. PEPTO BISMOL [Concomitant]
  18. ROLAIDS [Concomitant]

REACTIONS (12)
  - Limb operation [Unknown]
  - Spinal disorder [Unknown]
  - Arthralgia [Unknown]
  - Insomnia [Unknown]
  - Chest pain [Unknown]
  - Dyspnoea [Unknown]
  - Back pain [Unknown]
  - Multiple fractures [Unknown]
  - Pain in extremity [Unknown]
  - Carpal tunnel syndrome [Unknown]
  - Osteoporosis [Unknown]
  - Bipolar disorder [Unknown]
